FAERS Safety Report 18741644 (Version 1)
Quarter: 2021Q1

REPORT INFORMATION
  Report Type: Spontaneous
  Country: IT (occurrence: IT)
  Receive Date: 20210114
  Receipt Date: 20210114
  Transmission Date: 20210419
  Serious: Yes (Hospitalization)
  Sender: FDA-Public Use
  Company Number: IT-ELI_LILLY_AND_COMPANY-IT202101001499

PATIENT
  Age: 68 Year
  Sex: Female

DRUGS (1)
  1. HUMALOG [Suspect]
     Active Substance: INSULIN LISPRO
     Indication: PRODUCT USED FOR UNKNOWN INDICATION
     Dosage: 35 K[IU], UNKNOWN
     Route: 058
     Dates: start: 20201229, end: 20201229

REACTIONS (2)
  - Hypoglycaemia [Recovering/Resolving]
  - Wrong product administered [Recovering/Resolving]

NARRATIVE: CASE EVENT DATE: 20201229
